FAERS Safety Report 8207307-0 (Version None)
Quarter: 2012Q1

REPORT INFORMATION
  Report Type: 
  Country: None (occurrence: None)
  Receive Date: 20120312
  Receipt Date: 20120228
  Transmission Date: 20120608
  Serious: Yes (Hospitalization, Other)
  Sender: FDA-Public Use
  Company Number: RENA-1000457

PATIENT
  Age: 34 Year
  Sex: Female

DRUGS (27)
  1. NEORAL [Suspect]
     Indication: PRODUCT USED FOR UNKNOWN INDICATION
     Dosage: 100 MG, BID  : 50 MG, BID  : 25 MG, BID
     Dates: start: 20081105, end: 20081217
  2. NEORAL [Suspect]
     Indication: PRODUCT USED FOR UNKNOWN INDICATION
     Dosage: 100 MG, BID  : 50 MG, BID  : 25 MG, BID
     Dates: end: 20081021
  3. NEORAL [Suspect]
     Indication: PRODUCT USED FOR UNKNOWN INDICATION
     Dosage: 100 MG, BID  : 50 MG, BID  : 25 MG, BID
     Dates: start: 20081022, end: 20081105
  4. RHINOFLUIMUCIL (ACETYCYSTEINE, BENZALKONIUM CHLORIDE, TUAMINOHEPTANE) [Suspect]
     Indication: PRODUCT USED FOR UNKNOWN INDICATION
     Dosage: 2 BID
     Dates: start: 20081107, end: 20081110
  5. ATARAX [Suspect]
     Indication: PRODUCT USED FOR UNKNOWN INDICATION
     Dosage: 25 MG, QD
     Dates: start: 20080818, end: 20081217
  6. AMLODIPINE BESYLATE [Suspect]
     Indication: PRODUCT USED FOR UNKNOWN INDICATION
     Dosage: 5 MG, QD
     Dates: start: 20080620, end: 20080916
  7. AMLODIPINE BESYLATE [Suspect]
     Indication: PRODUCT USED FOR UNKNOWN INDICATION
     Dosage: 5 MG, QD
     Dates: start: 20080917, end: 20081215
  8. VENOFER [Suspect]
     Indication: PRODUCT USED FOR UNKNOWN INDICATION
     Dosage: 1, 2X/W  : 1, 3X/W  : 1, 1X/W
     Dates: start: 20080613, end: 20081016
  9. VENOFER [Suspect]
     Indication: PRODUCT USED FOR UNKNOWN INDICATION
     Dosage: 1, 2X/W  : 1, 3X/W  : 1, 1X/W
     Dates: start: 20081215, end: 20081217
  10. AZATHIOPRINE [Suspect]
     Indication: PRODUCT USED FOR UNKNOWN INDICATION
     Dosage: 75 MG, BID : 50 MG, BID : 25 MG
     Dates: start: 20080613, end: 20080821
  11. AZATHIOPRINE [Suspect]
     Indication: PRODUCT USED FOR UNKNOWN INDICATION
     Dosage: 75 MG, BID : 50 MG, BID : 25 MG
     Dates: start: 20080822, end: 20080905
  12. AZATHIOPRINE [Suspect]
     Indication: PRODUCT USED FOR UNKNOWN INDICATION
     Dosage: 75 MG, BID : 50 MG, BID : 25 MG
     Dates: start: 20080906, end: 20080916
  13. RUBOZINC (ZINC GLUCONATE) [Suspect]
     Indication: PRODUCT USED FOR UNKNOWN INDICATION
     Dates: start: 20080829, end: 20080916
  14. NEXIUM [Suspect]
     Indication: PRODUCT USED FOR UNKNOWN INDICATION
     Dosage: 40 MG, QD : 20 MG
     Dates: start: 20080822, end: 20081217
  15. NEXIUM [Suspect]
     Indication: PRODUCT USED FOR UNKNOWN INDICATION
     Dosage: 40 MG, QD : 20 MG
     Dates: start: 20080613, end: 20080821
  16. KAYEXALATE [Suspect]
     Indication: PRODUCT USED FOR UNKNOWN INDICATION
     Dosage: 1 , QD  : 2 , QD
     Dates: start: 20080613, end: 20080804
  17. KAYEXALATE [Suspect]
     Indication: PRODUCT USED FOR UNKNOWN INDICATION
     Dosage: 1 , QD  : 2 , QD
     Dates: start: 20080805, end: 20081115
  18. MUCOMYST [Suspect]
     Indication: PRODUCT USED FOR UNKNOWN INDICATION
     Dosage: 200 MG, BID
     Dates: start: 20081107, end: 20081110
  19. UN-ALFA (ALFACALCIDOL) [Suspect]
     Indication: PRODUCT USED FOR UNKNOWN INDICATION
     Dosage: 5 MCG, QD
     Dates: start: 20080704, end: 20081017
  20. RENAGEL [Suspect]
     Indication: HYPERPHOSPHATAEMIA
     Dosage: 800 MG, TID
     Dates: start: 20080828, end: 20081215
  21. CEFPODOXIME PROXETIL [Suspect]
     Indication: PRODUCT USED FOR UNKNOWN INDICATION
     Dosage: 100 MG, BID
     Dates: start: 20081107, end: 20081117
  22. ARANESP [Suspect]
     Indication: PRODUCT USED FOR UNKNOWN INDICATION
     Dosage: 60 MCG, 1X/W   : 80 MCG, 2X/W
     Dates: start: 20080929, end: 20081217
  23. ARANESP [Suspect]
     Indication: PRODUCT USED FOR UNKNOWN INDICATION
     Dosage: 60 MCG, 1X/W   : 80 MCG, 2X/W
     Dates: start: 20080727, end: 20080928
  24. TIXOCORTOL PIVALATE [Suspect]
     Indication: PRODUCT USED FOR UNKNOWN INDICATION
     Dosage: 2 BID
     Dates: start: 20081031, end: 20081107
  25. ANTIBIOTREX (ERYTHROMYCIN, ISOTRETINOIN) [Suspect]
     Indication: PRODUCT USED FOR UNKNOWN INDICATION
     Dosage: 1 DAY, BID
     Dates: start: 20080829, end: 20080916
  26. FUROSEMIDE [Suspect]
     Indication: PRODUCT USED FOR UNKNOWN INDICATION
     Dosage: 500 MG, BID
     Dates: start: 20080613, end: 20081215
  27. FOLIC ACID [Suspect]
     Indication: PRODUCT USED FOR UNKNOWN INDICATION
     Dosage: 5 MG, BID
     Dates: start: 20081008, end: 20081217

REACTIONS (6)
  - UTERINE CONTRACTIONS DURING PREGNANCY [None]
  - CERVIX DISORDER [None]
  - FOETAL DEATH [None]
  - MATERNAL EXPOSURE DURING PREGNANCY [None]
  - ABORTION SPONTANEOUS [None]
  - DIALYSIS [None]
